FAERS Safety Report 14841187 (Version 2)
Quarter: 2018Q2

REPORT INFORMATION
  Report Type: Report from Study
  Country: PL (occurrence: PL)
  Receive Date: 20180503
  Receipt Date: 20180518
  Transmission Date: 20180711
  Serious: Yes (Hospitalization)
  Sender: FDA-Public Use
  Company Number: PL-ROCHE-2116774

PATIENT
  Age: 61 Year
  Sex: Male
  Weight: 69 kg

DRUGS (14)
  1. ATOSSA [Concomitant]
     Indication: NAUSEA
     Route: 048
     Dates: start: 20170322
  2. FOLIC ACID. [Concomitant]
     Active Substance: FOLIC ACID
     Route: 048
     Dates: start: 20180131, end: 20180208
  3. LIPANCREA [Concomitant]
     Indication: DIARRHOEA
     Route: 048
     Dates: start: 20180131, end: 20180208
  4. IRCOLON [Concomitant]
     Indication: DIARRHOEA
     Route: 048
     Dates: start: 20180131, end: 20180208
  5. ATEZOLIZUMAB. [Suspect]
     Active Substance: ATEZOLIZUMAB
     Indication: SMALL CELL LUNG CANCER EXTENSIVE STAGE
     Dosage: MOST RECENT DOSE OF BLINDED ATEZOLIZUMAB PRIOR TO EVENT ONSET WAS ON 21/AUG/2017 AT 12:00
     Route: 042
     Dates: start: 20170322
  6. ETOPOSIDE. [Suspect]
     Active Substance: ETOPOSIDE
     Indication: SMALL CELL LUNG CANCER EXTENSIVE STAGE
     Dosage: MOST RECENT DOSE OF ETOPOSIDE (183.73 MG) PRIOR TO EVENT ONSET WAS ON 31/MAY/2017 ?(AS PER PROTOCOL:
     Route: 042
     Dates: start: 20170322
  7. LUCETAM [Concomitant]
     Indication: SPINAL DISORDER
     Route: 048
  8. CINNARIZINUM [Concomitant]
     Indication: SPINAL DISORDER
     Route: 048
  9. CARBOPLATIN. [Suspect]
     Active Substance: CARBOPLATIN
     Indication: SMALL CELL LUNG CANCER EXTENSIVE STAGE
     Dosage: MOST RECENT DOSE OF CARBOPLATIN (612.84 MG) PRIOR TO EVENT ONSET WAS ON 29/MAY/2017 AT 13:45?(AS PER
     Route: 042
     Dates: start: 20170322
  10. SIRDALUD [Concomitant]
     Active Substance: TIZANIDINE
     Indication: SPINAL DISORDER
     Route: 048
  11. CLARITINE [Concomitant]
     Active Substance: LORATADINE
     Indication: RHINITIS
     Route: 048
  12. STOPERAN [Concomitant]
     Indication: DIARRHOEA
     Route: 048
     Dates: start: 20180131, end: 20180208
  13. FAMOGAST [Concomitant]
     Indication: GASTRITIS
     Route: 048
  14. DEXILANT [Concomitant]
     Active Substance: DEXLANSOPRAZOLE
     Indication: GASTRITIS
     Route: 048

REACTIONS (1)
  - Skin toxicity [Recovered/Resolved]

NARRATIVE: CASE EVENT DATE: 20180131
